FAERS Safety Report 14333681 (Version 2)
Quarter: 2018Q1

REPORT INFORMATION
  Report Type: Spontaneous
  Country: US (occurrence: US)
  Receive Date: 20171228
  Receipt Date: 20180222
  Transmission Date: 20180509
  Serious: Yes (Death)
  Sender: FDA-Public Use
  Company Number: US-PFIZER INC-2017552775

PATIENT
  Age: 68 Year
  Sex: Male

DRUGS (1)
  1. VFEND [Suspect]
     Active Substance: VORICONAZOLE
     Indication: LEUKAEMIA
     Dosage: 200 MG, 2X/DAY
     Dates: end: 201712

REACTIONS (1)
  - Drug ineffective for unapproved indication [Fatal]
